FAERS Safety Report 11548132 (Version 1)
Quarter: 2015Q3

REPORT INFORMATION
  Report Type: Spontaneous
  Country: US (occurrence: US)
  Receive Date: 20150924
  Receipt Date: 20150924
  Transmission Date: 20151125
  Serious: No
  Sender: FDA-Public Use
  Company Number: US-INCYTE CORPORATION-2015IN000779

PATIENT
  Age: 76 Year
  Sex: Female

DRUGS (11)
  1. JAKAFI [Suspect]
     Active Substance: RUXOLITINIB
     Indication: MYELOFIBROSIS
     Dosage: 20 MG, BID
     Route: 048
     Dates: start: 20130322
  2. ALENDRONATE [Concomitant]
     Active Substance: ALENDRONATE SODIUM
  3. OMEGA 3 FISH OIL                   /01334101/ [Concomitant]
  4. TIMOLOL. [Concomitant]
     Active Substance: TIMOLOL
  5. VITAMIN D                          /00107901/ [Concomitant]
     Active Substance: ERGOCALCIFEROL
  6. DANAZOL. [Concomitant]
     Active Substance: DANAZOL
  7. AMLODIPINE [Concomitant]
     Active Substance: AMLODIPINE BESYLATE
  8. ASPIRIN. [Concomitant]
     Active Substance: ASPIRIN
  9. VITAMIN A                          /00056001/ [Concomitant]
     Active Substance: RETINOL
  10. LATANOPROST. [Concomitant]
     Active Substance: LATANOPROST
  11. VITAMIN C [Concomitant]
     Active Substance: ASCORBIC ACID

REACTIONS (1)
  - Hepatic enzyme increased [Unknown]

NARRATIVE: CASE EVENT DATE: 20150224
